FAERS Safety Report 8513016-0 (Version None)
Quarter: 2012Q3

REPORT INFORMATION
  Report Type: 
  Country: None (occurrence: None)
  Receive Date: 20120716
  Receipt Date: 20120711
  Transmission Date: 20120928
  Serious: Yes (Other)
  Sender: FDA-Public Use
  Company Number: US-PFIZER INC-2012168159

PATIENT
  Sex: Male
  Weight: 124 kg

DRUGS (2)
  1. CADUET [Suspect]
     Indication: HYPERTENSION
     Dosage: UNK
     Dates: end: 20070101
  2. CADUET [Suspect]
     Indication: BLOOD CHOLESTEROL INCREASED

REACTIONS (2)
  - CARDIAC DISORDER [None]
  - DRUG INEFFECTIVE [None]
